FAERS Safety Report 4712286-4 (Version None)
Quarter: 2005Q3

REPORT INFORMATION
  Report Type: 
  Country: None (occurrence: None)
  Receive Date: 20050712
  Receipt Date: 20050704
  Transmission Date: 20060218
  Serious: Yes (Other)
  Sender: FDA-Public Use
  Company Number: JP-BRISTOL-MYERS SQUIBB COMPANY-13026315

PATIENT
  Age: 65 Year
  Sex: Female

DRUGS (2)
  1. TAXOL [Suspect]
     Indication: OVARIAN CANCER
     Route: 042
     Dates: start: 20050617, end: 20050624
  2. RANDA [Concomitant]
     Indication: OVARIAN CANCER
     Route: 033
     Dates: start: 20050617, end: 20050624

REACTIONS (2)
  - CARDIAC FAILURE [None]
  - RHABDOMYOLYSIS [None]
